FAERS Safety Report 7198581-0 (Version None)
Quarter: 2010Q4

REPORT INFORMATION
  Report Type: 
  Country: None (occurrence: None)
  Receive Date: 20101227
  Receipt Date: 20101216
  Transmission Date: 20110411
  Serious: Yes (Other)
  Sender: FDA-Public Use
  Company Number: US-JNJFOC-20101206250

PATIENT
  Sex: Female
  Weight: 63.5 kg

DRUGS (10)
  1. DURAGESIC-50 [Suspect]
     Indication: PAIN IN EXTREMITY
     Route: 062
  2. DURAGESIC-50 [Suspect]
     Route: 062
  3. DURAGESIC-50 [Suspect]
     Indication: BACK PAIN
     Route: 062
  4. DURAGESIC-50 [Suspect]
     Route: 062
  5. DURAGESIC-50 [Suspect]
     Route: 062
  6. DURAGESIC-50 [Suspect]
     Route: 062
  7. DURAGESIC-50 [Suspect]
     Route: 062
  8. DURAGESIC-50 [Suspect]
     Route: 062
  9. DARVOCET [Concomitant]
     Indication: BREAKTHROUGH PAIN
     Route: 048
  10. SKELAXIN [Concomitant]
     Indication: BREAKTHROUGH PAIN
     Route: 048

REACTIONS (11)
  - BLOOD CHOLESTEROL INCREASED [None]
  - CONSTIPATION [None]
  - DRUG INEFFECTIVE [None]
  - GASTROINTESTINAL MOTILITY DISORDER [None]
  - HYPERTENSION [None]
  - INAPPROPRIATE SCHEDULE OF DRUG ADMINISTRATION [None]
  - LYMPHOMA [None]
  - MALAISE [None]
  - NAUSEA [None]
  - PRODUCT QUALITY ISSUE [None]
  - VOMITING [None]
